FAERS Safety Report 9753898 (Version 2)
Quarter: 2013Q4

REPORT INFORMATION
  Report Type: Spontaneous
  Country: US (occurrence: US)
  Receive Date: 20131213
  Receipt Date: 20131213
  Transmission Date: 20140711
  Serious: No
  Sender: FDA-Public Use
  Company Number: US-GILEAD-2010-0027542

PATIENT
  Sex: Female
  Weight: 87.54 kg

DRUGS (25)
  1. LETAIRIS [Suspect]
     Indication: PULMONARY ARTERIAL HYPERTENSION
     Route: 048
     Dates: start: 20091230
  2. DILTIAZEM [Concomitant]
  3. PRINIVIL [Concomitant]
  4. LIPITOR [Concomitant]
  5. LASIX [Concomitant]
  6. ALDACTONE [Concomitant]
  7. COUMADIN [Concomitant]
  8. ZITHROMAX [Concomitant]
  9. ALBUTEROL [Concomitant]
  10. HUMALOG [Concomitant]
  11. LANTUS [Concomitant]
  12. KLONOPIN [Concomitant]
  13. DOXEPIN [Concomitant]
  14. REQUIP [Concomitant]
  15. SYNTHROID [Concomitant]
  16. TIKOSYN [Concomitant]
  17. CARAFATE [Concomitant]
  18. TOPIRAMATE [Concomitant]
  19. LUNESTA [Concomitant]
  20. SINEMET [Concomitant]
  21. PROTONIX [Concomitant]
  22. LEXAPRO [Concomitant]
  23. VICODIN [Concomitant]
  24. VITAMIN D [Concomitant]
  25. POTASSIUM CHLORIDE [Concomitant]

REACTIONS (4)
  - Nasal dryness [Unknown]
  - Epistaxis [Unknown]
  - Nasal congestion [Unknown]
  - Dyspnoea [Unknown]
